FAERS Safety Report 8956569 (Version 1)
Quarter: 2012Q4

REPORT INFORMATION
  Report Type: 
  Country: GB (occurrence: GB)
  Receive Date: 20121210
  Receipt Date: 20121210
  Transmission Date: 20130627
  Serious: Yes (Other)
  Sender: FDA-Public Use
  Company Number: GB-JNJFOC-20121200410

PATIENT
  Sex: Female

DRUGS (2)
  1. STELARA [Suspect]
     Indication: PRODUCT USED FOR UNKNOWN INDICATION
     Route: 058
  2. FLU VACCINE [Concomitant]
     Route: 065

REACTIONS (2)
  - Nasopharyngitis [Recovered/Resolved]
  - Influenza [Recovered/Resolved]
